FAERS Safety Report 23344119 (Version 2)
Quarter: 2024Q1

REPORT INFORMATION
  Report Type: Report from Study
  Country: US (occurrence: US)
  Receive Date: 20231227
  Receipt Date: 20240209
  Transmission Date: 20240410
  Serious: Yes (Hospitalization, Other)
  Sender: FDA-Public Use
  Company Number: US-UCBSA-2023060617

PATIENT
  Age: 72 Year
  Sex: Female

DRUGS (1)
  1. LACOSAMIDE [Suspect]
     Active Substance: LACOSAMIDE
     Indication: Seizure
     Dosage: 150 MILLIGRAM, 2X/DAY (BID)
     Route: 048

REACTIONS (4)
  - Diverticulitis [Recovered/Resolved]
  - Intestinal perforation [Not Recovered/Not Resolved]
  - Catheter placement [Not Recovered/Not Resolved]
  - Physiotherapy [Not Recovered/Not Resolved]

NARRATIVE: CASE EVENT DATE: 20231201
